FAERS Safety Report 5616036-9 (Version None)
Quarter: 2008Q1

REPORT INFORMATION
  Report Type: 
  Country: None (occurrence: None)
  Receive Date: 20080206
  Receipt Date: 20080125
  Transmission Date: 20080703
  Serious: Yes (Disabling, Other)
  Sender: FDA-Public Use
  Company Number: AU-PFIZER INC-2007068400

PATIENT
  Sex: Female
  Weight: 60 kg

DRUGS (8)
  1. LYRICA [Suspect]
     Indication: ANALGESIA
     Route: 048
     Dates: start: 20060630, end: 20060705
  2. GABAPENTIN [Suspect]
  3. CALTRATE [Concomitant]
  4. FLUOXETINE [Concomitant]
  5. WARFARIN SODIUM [Concomitant]
  6. NEXIUM [Concomitant]
  7. OXYCONTIN [Concomitant]
  8. OXYNORM [Concomitant]

REACTIONS (9)
  - ALCOHOLIC [None]
  - ECONOMIC PROBLEM [None]
  - HYPOMANIA [None]
  - INSOMNIA [None]
  - MANIA [None]
  - PAIN [None]
  - PSYCHOMOTOR HYPERACTIVITY [None]
  - TONSILLECTOMY [None]
  - WEIGHT DECREASED [None]
